FAERS Safety Report 5197150-1 (Version None)
Quarter: 2007Q1

REPORT INFORMATION
  Report Type: 
  Country: None (occurrence: None)
  Receive Date: 20070103
  Receipt Date: 20061222
  Transmission Date: 20070707
  Serious: Yes (Other)
  Sender: FDA-Public Use
  Company Number: GB-GLAXOSMITHKLINE-B0447073A

PATIENT
  Sex: Female

DRUGS (7)
  1. SERETIDE [Suspect]
     Indication: ASTHMA
     Dosage: 500MCG UNKNOWN
     Route: 055
  2. VENTOLIN [Concomitant]
     Route: 055
  3. INSULIN [Concomitant]
  4. PANTOPRAZOLE SODIUM [Concomitant]
  5. LEVOCETIRIZINE [Concomitant]
  6. SINGULAIR [Concomitant]
  7. SIMVASTATIN [Concomitant]

REACTIONS (3)
  - ASTHMA [None]
  - DYSGEUSIA [None]
  - SALIVARY HYPERSECRETION [None]
